FAERS Safety Report 4504977-5 (Version None)
Quarter: 2004Q4

REPORT INFORMATION
  Report Type: 
  Country: None (occurrence: None)
  Receive Date: 20041015
  Receipt Date: 20031224
  Transmission Date: 20050328
  Serious: Yes (Hospitalization, Other)
  Sender: FDA-Public Use
  Company Number: 2003126925

PATIENT
  Sex: Male

DRUGS (1)
  1. NEURONTIN [Suspect]
     Indication: ILL-DEFINED DISORDER

REACTIONS (4)
  - DEPRESSION [None]
  - MENTAL IMPAIRMENT [None]
  - PERSONALITY CHANGE [None]
  - SUICIDAL IDEATION [None]
